FAERS Safety Report 20899645 (Version 1)
Quarter: 2022Q2

REPORT INFORMATION
  Report Type: Spontaneous
  Country: US (occurrence: None)
  Receive Date: 20220531
  Receipt Date: 20220531
  Transmission Date: 20220721
  Serious: Yes (Disabling)
  Sender: FDA-Public Use
  Company Number: None

PATIENT
  Age: 0 Year
  Sex: Male
  Weight: 85.5 kg

DRUGS (1)
  1. JULUCA [Suspect]
     Active Substance: DOLUTEGRAVIR SODIUM\RILPIVIRINE HYDROCHLORIDE
     Indication: HIV infection
     Dates: end: 20220520

REACTIONS (40)
  - Arthralgia [None]
  - Arthralgia [None]
  - Gait disturbance [None]
  - Walking aid user [None]
  - Arthralgia [None]
  - Pain in extremity [None]
  - Arthralgia [None]
  - Pain in extremity [None]
  - Pain in extremity [None]
  - Pain in extremity [None]
  - Bone pain [None]
  - Back pain [None]
  - Pain in extremity [None]
  - Restlessness [None]
  - Fatigue [None]
  - Loss of personal independence in daily activities [None]
  - Crying [None]
  - Feeling of despair [None]
  - Violence-related symptom [None]
  - Gout [None]
  - Oral pain [None]
  - Tongue discomfort [None]
  - Lip pain [None]
  - Skin exfoliation [None]
  - Skin discolouration [None]
  - Coating in mouth [None]
  - Oesophageal pain [None]
  - Oesophageal pain [None]
  - Pruritus [None]
  - Dry skin [None]
  - Skin burning sensation [None]
  - Acne [None]
  - Gingival pain [None]
  - Pain in jaw [None]
  - Mood swings [None]
  - Disturbance in attention [None]
  - Insomnia [None]
  - Headache [None]
  - Fatigue [None]
  - Dyspnoea exertional [None]

NARRATIVE: CASE EVENT DATE: 19730519
